FAERS Safety Report 14860256 (Version 3)
Quarter: 2019Q1

REPORT INFORMATION
  Report Type: Spontaneous
  Country: PT (occurrence: PT)
  Receive Date: 20180508
  Receipt Date: 20190211
  Transmission Date: 20190417
  Serious: Yes (Death, Other)
  Sender: FDA-Public Use
  Company Number: PT-AXELLIA-001653

PATIENT
  Age: 66 Year
  Sex: Male

DRUGS (9)
  1. POSACONAZOLE [Concomitant]
     Active Substance: POSACONAZOLE
     Indication: ANTIFUNGAL PROPHYLAXIS
  2. VORICONAZOLE. [Suspect]
     Active Substance: VORICONAZOLE
     Indication: ANTIFUNGAL PROPHYLAXIS
  3. AMBISOME [Suspect]
     Active Substance: AMPHOTERICIN B
     Indication: SYSTEMIC MYCOSIS
  4. CYTARABINE/CYTARABINE HYDROCHLORIDE/CYTARABINE OCFOSFATE [Concomitant]
     Indication: ACUTE MYELOID LEUKAEMIA
  5. ETOPOSIDE. [Concomitant]
     Active Substance: ETOPOSIDE
     Indication: MYELODYSPLASTIC SYNDROME
  6. VANCOMYCIN [Concomitant]
     Active Substance: VANCOMYCIN
     Indication: ANTIFUNGAL PROPHYLAXIS
  7. MITOXANTRONE [Concomitant]
     Active Substance: MITOXANTRONE HYDROCHLORIDE
     Indication: MYELODYSPLASTIC SYNDROME
  8. IMIPENEM [Concomitant]
     Active Substance: IMIPENEM
     Indication: ANTIFUNGAL PROPHYLAXIS
  9. ACICLOVIR [Concomitant]
     Active Substance: ACYCLOVIR
     Indication: ANTIVIRAL PROPHYLAXIS

REACTIONS (5)
  - Drug ineffective [Fatal]
  - Pyrexia [Unknown]
  - Fungal infection [Unknown]
  - Systemic mycosis [Fatal]
  - Neutropenia [Not Recovered/Not Resolved]
